FAERS Safety Report 5614319-X (Version None)
Quarter: 2008Q1

REPORT INFORMATION
  Report Type: 
  Country: None (occurrence: None)
  Receive Date: 20080205
  Receipt Date: 20080131
  Transmission Date: 20080703
  Serious: Yes (Other)
  Sender: FDA-Public Use
  Company Number: DE-SANOFI-SYNTHELABO-A04200701648

PATIENT
  Sex: Male

DRUGS (3)
  1. OXALIPLATIN [Suspect]
     Indication: PROSTATE CANCER
     Route: 041
     Dates: start: 20070821, end: 20070821
  2. OXALIPLATIN [Suspect]
     Dosage: UNK
     Route: 041
     Dates: start: 20070903, end: 20070903
  3. GEMZAR [Concomitant]
     Indication: PROSTATE CANCER
     Dosage: UNK
     Route: 065
     Dates: start: 20070901, end: 20070901

REACTIONS (2)
  - EXTRAVASATION [None]
  - SEROMA [None]
